FAERS Safety Report 6666568-X (Version None)
Quarter: 2010Q2

REPORT INFORMATION
  Report Type: 
  Country: None (occurrence: None)
  Receive Date: 20100404
  Receipt Date: 20100303
  Transmission Date: 20101027
  Serious: No
  Sender: FDA-Public Use
  Company Number: US-BAYER-201012776BCC

PATIENT
  Age: 61 Year
  Sex: Female
  Weight: 109 kg

DRUGS (3)
  1. ALEVE [Suspect]
     Indication: ARTHRALGIA
     Dosage: UNIT DOSE: 220 MG
     Route: 048
  2. FISH OIL [Concomitant]
  3. VITAMIN B COMPLEX CAP [Concomitant]

REACTIONS (2)
  - INSOMNIA [None]
  - TINNITUS [None]
